FAERS Safety Report 4715899-9 (Version None)
Quarter: 2005Q3

REPORT INFORMATION
  Report Type: 
  Country: None (occurrence: None)
  Receive Date: 20050718
  Receipt Date: 20050706
  Transmission Date: 20060218
  Serious: Yes (Hospitalization)
  Sender: FDA-Public Use
  Company Number: US-MERCK-0507USA01141

PATIENT
  Age: 70 Year
  Sex: Male
  Weight: 66 kg

DRUGS (8)
  1. VIOXX [Suspect]
     Indication: ARTHRALGIA
     Route: 048
     Dates: start: 20000701, end: 20011101
  2. VIOXX [Suspect]
     Route: 048
     Dates: start: 20020307, end: 20020301
  3. VIOXX [Suspect]
     Route: 048
     Dates: start: 20021001
  4. VIOXX [Suspect]
     Route: 048
     Dates: end: 20021121
  5. COZAAR [Concomitant]
     Indication: CEREBROVASCULAR ACCIDENT PROPHYLAXIS
     Route: 048
     Dates: start: 20010807
  6. COZAAR [Concomitant]
     Indication: HYPERTENSION
     Route: 048
     Dates: start: 20010807
  7. DARVOCET-N 100 [Concomitant]
     Indication: ARTHRITIS
     Route: 065
     Dates: start: 20021121
  8. MAXZIDE [Concomitant]
     Route: 065

REACTIONS (9)
  - ACUTE MYOCARDIAL INFARCTION [None]
  - BLOOD CHOLESTEROL INCREASED [None]
  - BRONCHITIS ACUTE [None]
  - CORONARY ARTERY STENOSIS [None]
  - HEPATOCELLULAR DAMAGE [None]
  - IRON DEFICIENCY ANAEMIA [None]
  - MYOCARDIAL INFARCTION [None]
  - RENAL FAILURE [None]
  - RHINITIS ALLERGIC [None]
